FAERS Safety Report 5095979-1 (Version None)
Quarter: 2006Q3

REPORT INFORMATION
  Report Type: 
  Country: None (occurrence: None)
  Receive Date: 20060905
  Receipt Date: 20060830
  Transmission Date: 20061208
  Serious: Yes (Life-Threatening)
  Sender: FDA-Public Use
  Company Number: BR-GLAXOSMITHKLINE-A0618844A

PATIENT
  Age: 53 Year
  Sex: Female

DRUGS (1)
  1. AEROLIN [Suspect]

REACTIONS (3)
  - DYSPNOEA [None]
  - FATIGUE [None]
  - TACHYCARDIA [None]
